FAERS Safety Report 19412121 (Version 1)
Quarter: 2021Q2

REPORT INFORMATION
  Report Type: Spontaneous
  Country: US (occurrence: US)
  Receive Date: 20210614
  Receipt Date: 20210614
  Transmission Date: 20210717
  Serious: No
  Sender: FDA-Public Use
  Company Number: US-SA-2021SA186649

PATIENT
  Age: 61 Year
  Sex: Female

DRUGS (1)
  1. LANTUS [Suspect]
     Active Substance: INSULIN GLARGINE
     Indication: DIABETES MELLITUS
     Dosage: 26 UNITS MORNING AND NIGHT, BID
     Route: 065

REACTIONS (3)
  - Device issue [Unknown]
  - Inappropriate schedule of product administration [Unknown]
  - Incorrect dose administered by device [Unknown]
